FAERS Safety Report 15154202 (Version 1)
Quarter: 2018Q3

REPORT INFORMATION
  Report Type: Spontaneous
  Country: US (occurrence: US)
  Receive Date: 20180717
  Receipt Date: 20180717
  Transmission Date: 20181010
  Serious: Yes (Other)
  Sender: FDA-Public Use
  Company Number: US-PFIZER INC-2018283939

PATIENT
  Age: 84 Year
  Sex: Male
  Weight: 67.9 kg

DRUGS (6)
  1. ARICEPT [Concomitant]
     Active Substance: DONEPEZIL HYDROCHLORIDE
     Dosage: 10 MG, 1X/DAY (QHS)
  2. HYDROCHLOORTHIAZIDE [Concomitant]
     Active Substance: HYDROCHLOROTHIAZIDE
     Dosage: 25 MG, DAILY
  3. AMLODIPINE [Concomitant]
     Active Substance: AMLODIPINE BESYLATE
     Dosage: 10 MG, DAILY
  4. ALECTINIB. [Concomitant]
     Active Substance: ALECTINIB
     Dosage: 600 MG, 2X/DAY
     Route: 048
  5. CRIZOTINIB [Suspect]
     Active Substance: CRIZOTINIB
     Indication: LUNG NEOPLASM MALIGNANT
     Dosage: UNK
     Dates: start: 201404, end: 2017
  6. PRAVASTATIN. [Concomitant]
     Active Substance: PRAVASTATIN
     Dosage: 20 MG, DAILY

REACTIONS (3)
  - Chronic kidney disease [Unknown]
  - Neoplasm progression [Unknown]
  - Blood creatinine increased [Unknown]
